FAERS Safety Report 8455009-8 (Version None)
Quarter: 2012Q2

REPORT INFORMATION
  Report Type: 
  Country: None (occurrence: None)
  Receive Date: 20120614
  Receipt Date: 20120614
  Transmission Date: 20120825
  Serious: Yes (Life-Threatening, Hospitalization)
  Sender: FDA-Public Use
  Company Number: None

PATIENT
  Age: 84 Year
  Sex: Female
  Weight: 94 kg

DRUGS (6)
  1. HYDROCHLOROTHIAZIDE [Concomitant]
  2. CALCIUM + VITAMIN D [Concomitant]
  3. OMEPRAZOLE [Concomitant]
  4. BOTOX [Suspect]
     Indication: TORTICOLLIS
     Dosage: ONCE IM
     Route: 030
     Dates: start: 20120504, end: 20120504
  5. AVAPRO [Concomitant]
  6. VITAMIN B-12 [Concomitant]

REACTIONS (6)
  - DYSPHAGIA [None]
  - EATING DISORDER [None]
  - DEEP VEIN THROMBOSIS [None]
  - HAEMATOCRIT DECREASED [None]
  - SALIVARY HYPERSECRETION [None]
  - HAEMOGLOBIN DECREASED [None]
